FAERS Safety Report 9041624 (Version 1)
Quarter: 2013Q1

REPORT INFORMATION
  Report Type: Report from Study
  Country: US (occurrence: US)
  Receive Date: 20130129
  Receipt Date: 20130129
  Transmission Date: 20140127
  Serious: No
  Sender: FDA-Public Use
  Company Number: US-ABBOTT-12P-163-0902650-00

PATIENT
  Sex: Female
  Weight: 56.75 kg

DRUGS (5)
  1. HUMIRA 40 MG/ 0.8 ML PRE-FILLED SYRINGE [Suspect]
     Indication: RHEUMATOID ARTHRITIS
     Dates: start: 2004
  2. CELEBREX [Concomitant]
     Indication: RHEUMATOID ARTHRITIS
  3. LOMOTIL [Concomitant]
     Indication: IRRITABLE BOWEL SYNDROME
  4. ACTIVELLA [Concomitant]
     Indication: HORMONE REPLACEMENT THERAPY
  5. METHOTREXATE [Concomitant]
     Indication: RHEUMATOID ARTHRITIS

REACTIONS (1)
  - Nasopharyngitis [Not Recovered/Not Resolved]
